FAERS Safety Report 7789136-5 (Version None)
Quarter: 2011Q3

REPORT INFORMATION
  Report Type: 
  Country: None (occurrence: None)
  Receive Date: 20110928
  Receipt Date: 20110916
  Transmission Date: 20111222
  Serious: Yes (Other)
  Sender: FDA-Public Use
  Company Number: PHHY2011JP83281

PATIENT
  Age: 80 Year
  Sex: Male

DRUGS (2)
  1. RANIBIZUMAB [Suspect]
     Indication: AGE-RELATED MACULAR DEGENERATION
  2. VISUDYNE [Suspect]
     Indication: AGE-RELATED MACULAR DEGENERATION

REACTIONS (4)
  - DISEASE RECURRENCE [None]
  - ENDOPHTHALMITIS [None]
  - MACULOPATHY [None]
  - VISUAL ACUITY REDUCED [None]
